FAERS Safety Report 16232854 (Version 1)
Quarter: 2019Q2

REPORT INFORMATION
  Report Type: Spontaneous
  Country: US (occurrence: US)
  Receive Date: 20190424
  Receipt Date: 20190424
  Transmission Date: 20190711
  Serious: No
  Sender: FDA-Public Use
  Company Number: US-PFIZER INC-2019169750

PATIENT
  Age: 56 Year
  Sex: Female
  Weight: 77.11 kg

DRUGS (1)
  1. NEOSPORIN [Suspect]
     Active Substance: BACITRACIN ZINC\NEOMYCIN SULFATE\POLYMYXIN B SULFATE
     Indication: IMPAIRED HEALING
     Dosage: UNK
     Route: 061

REACTIONS (1)
  - Drug effective for unapproved indication [Unknown]
